FAERS Safety Report 10158188 (Version 1)
Quarter: 2014Q2

REPORT INFORMATION
  Report Type: Spontaneous
  Country: ES (occurrence: ES)
  Receive Date: 20140507
  Receipt Date: 20140507
  Transmission Date: 20141212
  Serious: Yes (Death, Hospitalization)
  Sender: FDA-Public Use
  Company Number: PHHY2014ES052834

PATIENT
  Age: 67 Year
  Sex: Female

DRUGS (5)
  1. SINTROM [Suspect]
     Dosage: UNK UKN, UNK
     Route: 048
     Dates: end: 20131001
  2. ALOPURINOL [Suspect]
     Indication: HYPERURICAEMIA
     Dosage: 300 MG, QD
     Route: 048
     Dates: end: 20131001
  3. RAMIPRIL [Concomitant]
     Indication: HYPERTENSION
     Dosage: 2.5 MG, QD
     Route: 048
     Dates: end: 20131001
  4. FUROSEMIDE [Concomitant]
     Indication: CARDIAC FAILURE
     Dosage: 20 MG, QD
     Route: 048
     Dates: end: 20131001
  5. PRAVASTATIN [Concomitant]
     Indication: HYPERLIPIDAEMIA
     Dosage: 40 MG, QD
     Route: 048
     Dates: end: 20131001

REACTIONS (1)
  - Haemorrhage intracranial [Fatal]
